FAERS Safety Report 9565349 (Version 2)
Quarter: 2013Q4

REPORT INFORMATION
  Report Type: Spontaneous
  Country: US (occurrence: US)
  Receive Date: 20130930
  Receipt Date: 20131025
  Transmission Date: 20140711
  Serious: Yes (Other)
  Sender: FDA-Public Use
  Company Number: US-PFIZER INC-2013278317

PATIENT
  Age: 73 Year
  Sex: Female
  Weight: 65.31 kg

DRUGS (8)
  1. LYRICA [Suspect]
     Indication: FIBROMYALGIA
     Dosage: 25 MG, 1X/DAY
     Route: 048
     Dates: start: 201308
  2. LYRICA [Suspect]
     Dosage: 25-50 MG
     Route: 048
     Dates: start: 20130808
  3. LYRICA [Suspect]
     Dosage: 75 MG, 1X/DAY
     Route: 048
  4. LYRICA [Suspect]
     Dosage: UNK, 1X/DAY
     Route: 048
     Dates: end: 20130916
  5. PLAQUENIL [Concomitant]
     Indication: ARTHRITIS
     Dosage: UNK
  6. HYDROCODONE [Concomitant]
     Indication: BACK PAIN
     Dosage: UNK, PRN
  7. SOMA [Concomitant]
     Dosage: 350 MG, UNK
  8. NAPROSYN [Concomitant]
     Dosage: UNK, PRN

REACTIONS (4)
  - Sjogren^s syndrome [Unknown]
  - Memory impairment [Recovered/Resolved]
  - Blood count abnormal [Unknown]
  - Somnolence [Recovered/Resolved]
